FAERS Safety Report 12179033 (Version 4)
Quarter: 2018Q2

REPORT INFORMATION
  Report Type: Spontaneous
  Country: US (occurrence: US)
  Receive Date: 20160314
  Receipt Date: 20180515
  Transmission Date: 20180711
  Serious: No
  Sender: FDA-Public Use
  Company Number: US-SA-2016SA037357

PATIENT
  Age: 86 Year
  Sex: Female

DRUGS (16)
  1. SOLOSTAR [Concomitant]
     Active Substance: DEVICE
  2. SPIRIVA [Concomitant]
     Active Substance: TIOTROPIUM BROMIDE MONOHYDRATE
  3. SOLOSTAR [Concomitant]
     Active Substance: DEVICE
     Indication: TYPE 2 DIABETES MELLITUS
  4. LANTUS [Concomitant]
     Active Substance: INSULIN GLARGINE
     Dosage: DOSE:35 UNIT(S)
  5. SOLOSTAR [Concomitant]
     Active Substance: DEVICE
  6. METFORMIN [Concomitant]
     Active Substance: METFORMIN HYDROCHLORIDE
  7. TOUJEO [Suspect]
     Active Substance: INSULIN GLARGINE
     Indication: TYPE 2 DIABETES MELLITUS
     Dosage: DOSE:10 UNIT(S)
     Route: 065
     Dates: start: 20160210
  8. TOUJEO [Suspect]
     Active Substance: INSULIN GLARGINE
     Indication: TYPE 2 DIABETES MELLITUS
     Dosage: DOSE:18 UNIT(S)
     Route: 065
     Dates: start: 2016
  9. TOUJEO [Suspect]
     Active Substance: INSULIN GLARGINE
     Indication: TYPE 2 DIABETES MELLITUS
     Dosage: DOSE:36 UNIT(S)
     Route: 065
     Dates: start: 2016
  10. SOLOSTAR [Concomitant]
     Active Substance: DEVICE
     Indication: TYPE 2 DIABETES MELLITUS
     Dates: start: 20160210
  11. LANTUS [Concomitant]
     Active Substance: INSULIN GLARGINE
     Dosage: DOSE:36 UNIT(S)
  12. NOVOLIN [Concomitant]
     Active Substance: INSULIN HUMAN
  13. TOUJEO [Suspect]
     Active Substance: INSULIN GLARGINE
     Indication: TYPE 2 DIABETES MELLITUS
     Dosage: DOSE:38 UNIT(S)
     Route: 065
     Dates: start: 2016
  14. INVOKANA [Concomitant]
     Active Substance: CANAGLIFLOZIN
     Dosage: DOSE:35 UNIT(S)
  15. LANTUS [Concomitant]
     Active Substance: INSULIN GLARGINE
     Dosage: DOSE:45 UNIT(S)
  16. SOLOSTAR [Concomitant]
     Active Substance: DEVICE

REACTIONS (2)
  - Blood glucose increased [Unknown]
  - Product use issue [Unknown]
